FAERS Safety Report 7480359-1 (Version None)
Quarter: 2011Q2

REPORT INFORMATION
  Report Type: 
  Country: None (occurrence: None)
  Receive Date: 20110504
  Receipt Date: 20110419
  Transmission Date: 20111010
  Serious: Yes (Other)
  Sender: FDA-Public Use
  Company Number: AUR-APL-2011-01436

PATIENT
  Age: 54 Year
  Sex: Female
  Weight: 70.29 kg

DRUGS (5)
  1. RITALIN [Concomitant]
  2. VENLAFAXINE HCL [Suspect]
     Indication: DEPRESSION
     Dosage: 150MG-DAILY-ORAL
     Route: 048
     Dates: start: 20110101
  3. SYNTHROID [Concomitant]
  4. EFFEXOR [Suspect]
     Indication: DEPRESSION
     Dosage: 150MG-DAILY-ORAL
     Route: 048
     Dates: start: 20070101, end: 20110101
  5. TOPIRAMATE [Concomitant]

REACTIONS (4)
  - TINNITUS [None]
  - DRUG DOSE OMISSION [None]
  - DRUG WITHDRAWAL SYNDROME [None]
  - PARAESTHESIA [None]
